FAERS Safety Report 7305634-2 (Version None)
Quarter: 2011Q1

REPORT INFORMATION
  Report Type: 
  Country: None (occurrence: None)
  Receive Date: 20110210
  Receipt Date: 20110128
  Transmission Date: 20110831
  Serious: Yes (Hospitalization)
  Sender: FDA-Public Use
  Company Number: 1000018685

PATIENT
  Age: 83 Year
  Sex: Female

DRUGS (9)
  1. OFLOXACIN [Concomitant]
  2. NEBILOX (NEBIVOLOL HYDROCHLORIDE) [Concomitant]
  3. ACETAMINOPHEN [Concomitant]
  4. REMINYL (GALANTAMINE) (CAPSULES) [Suspect]
     Indication: DEMENTIA ALZHEIMER'S TYPE
     Dosage: 24 MG (24 MG, 1 IN 1 D), ORAL
     Route: 048
     Dates: end: 20101119
  5. CRESTOR [Concomitant]
  6. PRETERAX (INDAPAMIDE, PERINDOPRIL) [Concomitant]
  7. CITALOPRAM HYDROBROMIDE [Suspect]
     Dosage: 20 MG (20 MG, 1 IN 1 D), ORAL; 10 MG (10 MG, 1 IN 1 D), ORAL
     Route: 048
     Dates: start: 20101119
  8. CITALOPRAM HYDROBROMIDE [Suspect]
     Dosage: 20 MG (20 MG, 1 IN 1 D), ORAL; 10 MG (10 MG, 1 IN 1 D), ORAL
     Route: 048
     Dates: end: 20101118
  9. OROCAL (VITAMIN D3) [Concomitant]

REACTIONS (6)
  - GENERAL PHYSICAL HEALTH DETERIORATION [None]
  - DECREASED APPETITE [None]
  - WEIGHT DECREASED [None]
  - BLOOD ALBUMIN DECREASED [None]
  - FOLATE DEFICIENCY [None]
  - MALNUTRITION [None]
